FAERS Safety Report 17929735 (Version 2)
Quarter: 2020Q2

REPORT INFORMATION
  Report Type: Spontaneous
  Country: US (occurrence: US)
  Receive Date: 20200623
  Receipt Date: 20200626
  Transmission Date: 20200714
  Serious: Yes (Other)
  Sender: FDA-Public Use
  Company Number: US-PFIZER INC-2020241405

PATIENT
  Age: 4 Year
  Sex: Female
  Weight: 15 kg

DRUGS (7)
  1. MIDAZOLAM. [Suspect]
     Active Substance: MIDAZOLAM
     Indication: ANAESTHESIA
     Dosage: 0.5 MG (1 DOSE)
     Route: 042
     Dates: start: 20200611, end: 20200611
  2. FENTANYL CITRATE. [Suspect]
     Active Substance: FENTANYL CITRATE
     Dosage: 100 MCG/2ML
     Dates: start: 20200611, end: 20200611
  3. KIDS VITAMIN [Concomitant]
     Dosage: UNK
     Dates: end: 20200610
  4. PROPOFOL. [Suspect]
     Active Substance: PROPOFOL
     Indication: ANAESTHESIA
     Dosage: 30 MG (1 DOSE)
     Route: 042
     Dates: start: 20200611, end: 20200611
  5. SEVOFLURANE. [Suspect]
     Active Substance: SEVOFLURANE
     Indication: ANAESTHESIA
     Dosage: UNK
     Dates: start: 20200611, end: 20200611
  6. FENTANYL CITRATE. [Suspect]
     Active Substance: FENTANYL CITRATE
     Indication: ANAESTHESIA
     Dosage: UNK (150 MCG/2ML VIALS) (50 UG)
     Dates: start: 20200611, end: 20200611
  7. KIDS VITAMIN [Concomitant]
     Dosage: UNK

REACTIONS (3)
  - Hypotension [Recovered/Resolved]
  - Hypertension [Unknown]
  - Bradycardia [Recovered/Resolved]

NARRATIVE: CASE EVENT DATE: 20200611
